FAERS Safety Report 16094599 (Version 1)
Quarter: 2019Q1

REPORT INFORMATION
  Report Type: Spontaneous
  Country: JP (occurrence: JP)
  Receive Date: 20190320
  Receipt Date: 20190320
  Transmission Date: 20190418
  Serious: Yes (Other)
  Sender: FDA-Public Use
  Company Number: JP-AMGEN-JPNSP2019042977

PATIENT
  Age: 78 Year
  Sex: Male

DRUGS (2)
  1. TERIBONE [Suspect]
     Active Substance: TERIPARATIDE ACETATE
     Indication: OSTEOPOROSIS
     Dosage: 56.5 UNKNOWN, QWK
     Route: 058
  2. PRALIA [Suspect]
     Active Substance: DENOSUMAB
     Indication: OSTEOPOROSIS
     Dosage: 60 MILLIGRAM, Q6MO
     Route: 058
     Dates: start: 20181115

REACTIONS (2)
  - White blood cell count increased [Unknown]
  - Altered state of consciousness [Recovered/Resolved]

NARRATIVE: CASE EVENT DATE: 20190228
